FAERS Safety Report 8352013-5 (Version None)
Quarter: 2012Q2

REPORT INFORMATION
  Report Type: 
  Country: None (occurrence: None)
  Receive Date: 20120509
  Receipt Date: 20120223
  Transmission Date: 20120825
  Serious: Yes (Other)
  Sender: FDA-Public Use
  Company Number: 2012000108

PATIENT
  Age: 61 Year
  Sex: Female
  Weight: 76.2 kg

DRUGS (1)
  1. ACEON [Suspect]
     Indication: HYPERTENSION
     Dosage: 4 MG, QD, ORAL
     Route: 048
     Dates: start: 20120113, end: 20120101

REACTIONS (2)
  - BLOOD PRESSURE INADEQUATELY CONTROLLED [None]
  - ABDOMINAL DISCOMFORT [None]
